FAERS Safety Report 14435943 (Version 1)
Quarter: 2018Q1

REPORT INFORMATION
  Report Type: Spontaneous
  Country: US (occurrence: US)
  Receive Date: 20180124
  Receipt Date: 20180124
  Transmission Date: 20180509
  Serious: No
  Sender: FDA-Public Use
  Company Number: None

PATIENT
  Sex: Female

DRUGS (1)
  1. CARMEX [Suspect]
     Active Substance: CAMPHOR\MENTHOL\PHENOL\POTASSIUM ALUM\SALICYLIC ACID
     Indication: LIP DRY

REACTIONS (4)
  - Lip swelling [None]
  - Pharyngeal oedema [None]
  - Swollen tongue [None]
  - Lip erythema [None]

NARRATIVE: CASE EVENT DATE: 20180120
